FAERS Safety Report 4502449-5 (Version None)
Quarter: 2004Q4

REPORT INFORMATION
  Report Type: 
  Country: None (occurrence: None)
  Receive Date: 20041110
  Receipt Date: 20041101
  Transmission Date: 20050328
  Serious: Yes (Life-Threatening)
  Sender: FDA-Public Use
  Company Number: 2004AP05580

PATIENT
  Age: 59 Year
  Sex: Male

DRUGS (4)
  1. TENORMIN [Suspect]
     Indication: HYPERTENSION
     Dosage: 25 MG DAILY PO
     Route: 048
     Dates: start: 20040901, end: 20041024
  2. TENORMIN [Suspect]
     Indication: RENAL FAILURE CHRONIC
     Dosage: 25 MG DAILY PO
     Route: 048
     Dates: start: 20040901, end: 20041024
  3. CARDENALIN [Concomitant]
  4. DIOVAN [Concomitant]

REACTIONS (1)
  - CARDIAC FAILURE CONGESTIVE [None]
